FAERS Safety Report 21135765 (Version 4)
Quarter: 2022Q4

REPORT INFORMATION
  Report Type: Spontaneous
  Country: US (occurrence: US)
  Receive Date: 20220727
  Receipt Date: 20221010
  Transmission Date: 20230113
  Serious: Yes (Other)
  Sender: FDA-Public Use
  Company Number: US-ViiV Healthcare Limited-82618

PATIENT

DRUGS (2)
  1. VOCABRIA [Suspect]
     Active Substance: CABOTEGRAVIR SODIUM
     Indication: Product used for unknown indication
     Dosage: 30 MG, QD
     Route: 048
     Dates: start: 20220623, end: 20220707
  2. EDURANT [Suspect]
     Active Substance: RILPIVIRINE HYDROCHLORIDE
     Indication: Product used for unknown indication
     Dosage: 25 MG
     Route: 048
     Dates: start: 20220623, end: 20220707

REACTIONS (10)
  - Suicidal ideation [Unknown]
  - Depression [Unknown]
  - Fatigue [Unknown]
  - Asthenia [Unknown]
  - Crying [Unknown]
  - Feeling of despair [Unknown]
  - Hypersomnia [Unknown]
  - Restlessness [Recovering/Resolving]
  - Disturbance in attention [Unknown]
  - Performance status decreased [Recovering/Resolving]

NARRATIVE: CASE EVENT DATE: 20220101
